FAERS Safety Report 20386260 (Version 1)
Quarter: 2022Q1

REPORT INFORMATION
  Report Type: Spontaneous
  Country: US (occurrence: US)
  Receive Date: 20220127
  Receipt Date: 20220127
  Transmission Date: 20220423
  Serious: No
  Sender: FDA-Public Use
  Company Number: US-ALLERGAN-2132920US

PATIENT
  Age: 56 Year
  Sex: Female

DRUGS (1)
  1. BOTOX [Suspect]
     Active Substance: ONABOTULINUMTOXINA
     Indication: Migraine
     Dosage: 155 UNITS, SINGLE

REACTIONS (4)
  - Mephisto sign [Not Recovered/Not Resolved]
  - Pain in jaw [Recovered/Resolved]
  - Injection site pain [Recovered/Resolved]
  - Neck pain [Not Recovered/Not Resolved]
